FAERS Safety Report 4974474-1 (Version None)
Quarter: 2006Q1

REPORT INFORMATION
  Report Type: 
  Country: None (occurrence: None)
  Receive Date: 20060227
  Receipt Date: 20051228
  Transmission Date: 20060701
  Serious: No
  Sender: FDA-Public Use
  Company Number: PHEH2005US11907

PATIENT
  Age: 75 Year
  Sex: Male

DRUGS (7)
  1. ENABLEX [Suspect]
     Indication: HYPERTONIC BLADDER
     Dosage: 7.5 MG, QD
  2. METOPROLOL SUCCINATE [Concomitant]
  3. PERCOCET [Concomitant]
  4. FLOMAX [Concomitant]
  5. DILANTIN /AUS/ (PHENYTOIN SODIUM) [Concomitant]
  6. ZOCOR [Concomitant]
  7. ASPIRIN [Concomitant]

REACTIONS (8)
  - BLADDER SPASM [None]
  - DIZZINESS [None]
  - DRUG INEFFECTIVE [None]
  - DRY MOUTH [None]
  - DYSURIA [None]
  - FATIGUE [None]
  - PAIN [None]
  - URINARY INCONTINENCE [None]
